FAERS Safety Report 16866720 (Version 1)
Quarter: 2019Q4

REPORT INFORMATION
  Report Type: Spontaneous
  Country: US (occurrence: US)
  Receive Date: 20190927
  Receipt Date: 20190927
  Transmission Date: 20200122
  Serious: Yes (Other)
  Sender: FDA-Public Use
  Company Number: None

PATIENT
  Age: 29 Year
  Sex: Female

DRUGS (1)
  1. AIMOVIG [Suspect]
     Active Substance: ERENUMAB-AOOE
     Indication: MIGRAINE
     Dates: start: 20190701, end: 20190801

REACTIONS (4)
  - Urticaria [None]
  - Depression [None]
  - Alopecia [None]
  - Pruritus [None]

NARRATIVE: CASE EVENT DATE: 20190901
